FAERS Safety Report 4561740-7 (Version None)
Quarter: 2005Q1

REPORT INFORMATION
  Report Type: 
  Country: None (occurrence: None)
  Receive Date: 20050125
  Receipt Date: 20041114
  Transmission Date: 20050727
  Serious: Yes (Life-Threatening, Hospitalization, Other)
  Sender: FDA-Public Use
  Company Number: 2004095781

PATIENT
  Age: 67 Year
  Sex: Female
  Weight: 52.1637 kg

DRUGS (4)
  1. CELECOXIB (CELECOXIB) [Suspect]
     Indication: ARTHRITIS
     Dosage: 1 IN 1 D, ORAL
     Route: 048
     Dates: end: 20030101
  2. CONJUGATED ESTROGENS [Suspect]
     Indication: HYSTERECTOMY
  3. DAILY VITAMINS (VITAMINS NOS) [Concomitant]
  4. TOCOPHEROL (TOCOPHEROL) [Concomitant]

REACTIONS (3)
  - ARTERIAL OCCLUSIVE DISEASE [None]
  - MYOCARDIAL INFARCTION [None]
  - THERAPEUTIC RESPONSE DECREASED [None]
